FAERS Safety Report 9193749 (Version 1)
Quarter: 2013Q1

REPORT INFORMATION
  Report Type: Spontaneous
  Country: US (occurrence: None)
  Receive Date: 20130325
  Receipt Date: 20130325
  Transmission Date: 20140127
  Serious: No
  Sender: FDA-Public Use
  Company Number: None

PATIENT
  Age: 50 Year
  Sex: Male
  Weight: 111.59 kg

DRUGS (3)
  1. KENALOG [Suspect]
     Indication: NECK PAIN
     Route: 008
  2. KENALOG [Suspect]
     Indication: INTERVERTEBRAL DISC PROTRUSION
     Route: 008
  3. KENALOG [Suspect]
     Indication: RADICULAR PAIN
     Route: 008

REACTIONS (6)
  - Nausea [None]
  - Chills [None]
  - Migraine [None]
  - Abnormal sensation in eye [None]
  - Vision blurred [None]
  - Flushing [None]
